FAERS Safety Report 7219968-3 (Version None)
Quarter: 2011Q1

REPORT INFORMATION
  Report Type: 
  Country: None (occurrence: None)
  Receive Date: 20110111
  Receipt Date: 20101117
  Transmission Date: 20110831
  Serious: Yes (Hospitalization)
  Sender: FDA-Public Use
  Company Number: DE-GENZYME-FLUD-1000434

PATIENT
  Age: 68 Year

DRUGS (6)
  1. FLUDARA [Suspect]
     Indication: CHRONIC LYMPHOCYTIC LEUKAEMIA
     Dosage: 45 MG, UNK
     Route: 042
  2. FLUDARA [Suspect]
     Dosage: 45 MG, UNK
     Route: 042
  3. RITUXIMAB [Suspect]
     Dosage: 675 MG, UNK
     Route: 042
  4. RITUXIMAB [Suspect]
     Indication: CHRONIC LYMPHOCYTIC LEUKAEMIA
     Dosage: 675 MG, UNK
     Route: 042
  5. CYCLOPHOSPHAMIDE [Suspect]
     Indication: CHRONIC LYMPHOCYTIC LEUKAEMIA
     Dosage: 450 MG, UNK
     Route: 042
  6. CYCLOPHOSPHAMIDE [Suspect]
     Dosage: 450 MG, UNK
     Route: 042

REACTIONS (1)
  - GASTROENTERITIS [None]
